FAERS Safety Report 4506201-6 (Version None)
Quarter: 2005Q1

REPORT INFORMATION
  Report Type: 
  Country: None (occurrence: None)
  Receive Date: 20041025
  Receipt Date: 20040317
  Transmission Date: 20050727
  Serious: Yes (Hospitalization)
  Sender: FDA-Public Use
  Company Number: US-JNJFOC-20031002764

PATIENT
  Age: 56 Year
  Sex: Female
  Weight: 86.1834 kg

DRUGS (24)
  1. REMICADE [Suspect]
     Indication: CROHN'S DISEASE
     Dosage: 1 IN 1 DAY, INTRAVENOUS
     Route: 042
  2. XANAX [Concomitant]
  3. ZYRTEC [Concomitant]
  4. NEURONTIN [Concomitant]
  5. REMERON [Concomitant]
  6. IMIPRAMINE [Concomitant]
  7. PURINETHOL [Concomitant]
  8. PLAVIX [Concomitant]
  9. ASACOL [Concomitant]
  10. VIOXX [Concomitant]
  11. FLOVENT [Concomitant]
  12. COMBIVENT [Concomitant]
  13. ALBUTEROL [Concomitant]
  14. ADVAIR (SERETIDE MITE) [Concomitant]
  15. ALPHAGEN (BRIMONIDINE TARTRATE) [Concomitant]
  16. AMBIEN [Concomitant]
  17. VICODIN [Concomitant]
  18. LIPITOR [Concomitant]
  19. LEVAQUIN [Interacting]
  20. ZOFRAN [Concomitant]
  21. . [Concomitant]
  22. ZELNORM [Concomitant]
  23. MERCAPTOPURINE [Concomitant]
  24. EFFEXOR [Concomitant]

REACTIONS (4)
  - BRONCHITIS ACUTE [None]
  - CEREBROVASCULAR ACCIDENT [None]
  - DRUG INEFFECTIVE [None]
  - TRANSIENT ISCHAEMIC ATTACK [None]
